FAERS Safety Report 23295929 (Version 1)
Quarter: 2023Q4

REPORT INFORMATION
  Report Type: Spontaneous
  Country: US (occurrence: None)
  Receive Date: 20231213
  Receipt Date: 20231213
  Transmission Date: 20240109
  Serious: Yes (Death)
  Sender: FDA-Public Use
  Company Number: None

PATIENT
  Age: 70 Year
  Sex: Female
  Weight: 46.1 kg

DRUGS (2)
  1. TRAMETINIB [Suspect]
     Active Substance: TRAMETINIB
     Indication: Adenocarcinoma pancreas
     Dosage: FREQUENCY : DAILY;?
     Route: 048
     Dates: start: 20231011, end: 20231106
  2. HYDROXYCHLOROQUINE [Suspect]
     Active Substance: HYDROXYCHLOROQUINE
     Indication: Adenocarcinoma pancreas
     Dosage: FREQUENCY : TWICE A DAY;?
     Route: 048
     Dates: start: 20231011, end: 20231107

REACTIONS (10)
  - Liver function test increased [None]
  - Lung consolidation [None]
  - Pneumonia [None]
  - Acute respiratory failure [None]
  - Pneumonitis [None]
  - Cholestatic liver injury [None]
  - Biliary dilatation [None]
  - Gram stain positive [None]
  - Sputum culture positive [None]
  - Pain [None]

NARRATIVE: CASE EVENT DATE: 20231205
